FAERS Safety Report 12709022 (Version 1)
Quarter: 2016Q3

REPORT INFORMATION
  Report Type: Spontaneous
  Country: US (occurrence: US)
  Receive Date: 20160901
  Receipt Date: 20160901
  Transmission Date: 20161109
  Serious: No
  Sender: FDA-Public Use
  Company Number: US-JAZZ-2016-US-008694

PATIENT
  Sex: Female

DRUGS (29)
  1. PERCOCET [Concomitant]
     Active Substance: ACETAMINOPHEN\OXYCODONE HYDROCHLORIDE
  2. TUMS EX [Concomitant]
     Active Substance: CALCIUM CARBONATE
  3. AUGMENTIN [Concomitant]
     Active Substance: AMOXICILLIN\CLAVULANATE POTASSIUM
  4. FISH OIL CONCENTRATE [Concomitant]
  5. SENNA [Concomitant]
     Active Substance: SENNA LEAF\SENNOSIDES\SENNOSIDES A AND B
  6. GABAPENTIN. [Concomitant]
     Active Substance: GABAPENTIN
  7. ACYCLOVIR. [Concomitant]
     Active Substance: ACYCLOVIR
  8. XYREM [Suspect]
     Active Substance: SODIUM OXYBATE
     Indication: NARCOLEPSY
     Dosage: 3 G, BID
     Route: 048
     Dates: start: 200904, end: 201201
  9. FLONASE [Concomitant]
     Active Substance: FLUTICASONE PROPIONATE
  10. ZOVIRAX [Concomitant]
     Active Substance: ACYCLOVIR
  11. AMBIEN [Concomitant]
     Active Substance: ZOLPIDEM TARTRATE
  12. CELEXA [Concomitant]
     Active Substance: CITALOPRAM HYDROBROMIDE
  13. MEDROL [Concomitant]
     Active Substance: METHYLPREDNISOLONE
  14. XYREM [Suspect]
     Active Substance: SODIUM OXYBATE
     Dosage: 3.5 G, BID
     Route: 048
     Dates: start: 201201
  15. PATADAY [Concomitant]
     Active Substance: OLOPATADINE HYDROCHLORIDE
  16. ZYRTEC [Concomitant]
     Active Substance: CETIRIZINE HYDROCHLORIDE
  17. COLACE [Concomitant]
     Active Substance: DOCUSATE SODIUM
  18. CARAFATE [Concomitant]
     Active Substance: SUCRALFATE
  19. NASONEX [Concomitant]
     Active Substance: MOMETASONE FUROATE
  20. OXYBUTYNIN [Concomitant]
     Active Substance: OXYBUTYNIN
  21. METAXALONE. [Concomitant]
     Active Substance: METAXALONE
  22. CLARITIN [Concomitant]
     Active Substance: LORATADINE
  23. FERROUS SULFATE. [Concomitant]
     Active Substance: FERROUS SULFATE
  24. MULTIVITAMINS [Concomitant]
     Active Substance: VITAMINS
  25. NEXIUM [Concomitant]
     Active Substance: ESOMEPRAZOLE MAGNESIUM
  26. VITAMIN B COMPLEX [Concomitant]
     Active Substance: CYANOCOBALAMIN\DEXPANTHENOL\NIACINAMIDE\PYRIDOXINE HYDROCHLORIDE\RIBOFLAVIN 5^-PHOSPHATE SODIUM\THIAMINE HYDROCHLORIDE\VITAMIN B COMPLEX
  27. DIAZEPAM. [Concomitant]
     Active Substance: DIAZEPAM
  28. RITALIN [Concomitant]
     Active Substance: METHYLPHENIDATE HYDROCHLORIDE
  29. PERCOCET [Concomitant]
     Active Substance: ACETAMINOPHEN\OXYCODONE HYDROCHLORIDE

REACTIONS (1)
  - Back pain [Unknown]
